FAERS Safety Report 13286631 (Version 1)
Quarter: 2017Q1

REPORT INFORMATION
  Report Type: Spontaneous
  Country: US (occurrence: US)
  Receive Date: 20170302
  Receipt Date: 20170302
  Transmission Date: 20170428
  Serious: Yes (Other)
  Sender: FDA-Public Use
  Company Number: US-BAYER-2017-040065

PATIENT
  Sex: Female

DRUGS (1)
  1. BETASERON [Suspect]
     Active Substance: INTERFERON BETA-1B
     Dosage: 1 DOSE, QOD
     Route: 058

REACTIONS (5)
  - White blood cell count increased [None]
  - Injection site pain [None]
  - Joint range of motion decreased [None]
  - Injection site cellulitis [None]
  - Injection site warmth [Recovering/Resolving]
